FAERS Safety Report 15392912 (Version 3)
Quarter: 2019Q4

REPORT INFORMATION
  Report Type: Spontaneous
  Country: CZ (occurrence: CZ)
  Receive Date: 20180917
  Receipt Date: 20191101
  Transmission Date: 20200122
  Serious: Yes (Other)
  Sender: FDA-Public Use
  Company Number: CZ-AMGEN-CZESP2018126983

PATIENT
  Age: 65 Year
  Sex: Female

DRUGS (5)
  1. VECTIBIX [Suspect]
     Active Substance: PANITUMUMAB
     Indication: COLORECTAL CANCER METASTATIC
     Dosage: UNK UNK, Q2WK
     Route: 065
     Dates: start: 20150917, end: 201609
  2. OXALIPLATIN. [Suspect]
     Active Substance: OXALIPLATIN
     Indication: COLORECTAL CANCER METASTATIC
     Dosage: UNK
     Route: 042
     Dates: start: 20150917, end: 201609
  3. FLUOROURACIL. [Suspect]
     Active Substance: FLUOROURACIL
     Indication: COLON CANCER
     Dosage: UNK, Q2WK, (4 CYCLES)
     Route: 065
     Dates: start: 20150917
  4. NADROPARIN [Concomitant]
     Active Substance: NADROPARIN
     Indication: HYPERTENSION
     Route: 058
  5. FOLINIC ACID [Suspect]
     Active Substance: LEUCOVORIN
     Indication: COLORECTAL CANCER METASTATIC
     Dosage: UNK
     Route: 042
     Dates: start: 20150917, end: 2016

REACTIONS (14)
  - Neuropathy peripheral [Not Recovered/Not Resolved]
  - Thrombocytopenia [Recovered/Resolved]
  - Steatohepatitis [Unknown]
  - Haematotoxicity [Unknown]
  - Herpes simplex [Recovered/Resolved]
  - Stomatitis [Unknown]
  - Anaemia [Recovered/Resolved]
  - Rash [Recovered/Resolved]
  - Skin toxicity [Unknown]
  - Pain [Unknown]
  - Cholelithiasis [Unknown]
  - Nausea [Recovered/Resolved]
  - Epistaxis [Recovered/Resolved with Sequelae]
  - Hypertrichosis [Recovered/Resolved]

NARRATIVE: CASE EVENT DATE: 2015
